FAERS Safety Report 16205614 (Version 1)
Quarter: 2019Q2

REPORT INFORMATION
  Report Type: Spontaneous
  Country: US (occurrence: US)
  Receive Date: 20190417
  Receipt Date: 20190417
  Transmission Date: 20190711
  Serious: No
  Sender: FDA-Public Use
  Company Number: US-ZYDUS-034662

PATIENT
  Age: 67 Year
  Sex: Male

DRUGS (1)
  1. METOPROLOL/METOPROLOL FUMARATE/METOPROLOL SUCCINATE/METOPROLOL TARTRATE [Suspect]
     Active Substance: METOPROLOL
     Indication: PALPITATIONS
     Route: 048
     Dates: start: 20190202, end: 20190226

REACTIONS (6)
  - Gluten sensitivity [Recovered/Resolved]
  - Diarrhoea [Recovered/Resolved]
  - Abdominal distension [Recovered/Resolved]
  - Drug effective for unapproved indication [Recovered/Resolved]
  - Product use in unapproved indication [Recovered/Resolved]
  - Flatulence [Recovered/Resolved]

NARRATIVE: CASE EVENT DATE: 201902
